FAERS Safety Report 4380105-4 (Version None)
Quarter: 2004Q2

REPORT INFORMATION
  Report Type: 
  Country: None (occurrence: None)
  Receive Date: 20040614
  Receipt Date: 20040312
  Transmission Date: 20050107
  Serious: No
  Sender: FDA-Public Use
  Company Number: M04-341-056

PATIENT
  Age: 73 Year
  Sex: Male
  Weight: 82 kg

DRUGS (6)
  1. VELCADE [Suspect]
     Indication: MULTIPLE MYELOMA
     Dosage: 1.3MG/M2: INTRAVENOUS
     Route: 042
     Dates: start: 20040127
  2. ASPIRIN [Concomitant]
  3. GLUCOVANCE (GLIBOMET) [Concomitant]
  4. LIPITOR [Concomitant]
  5. VALTREX [Concomitant]
  6. ZESTRIL [Concomitant]

REACTIONS (1)
  - VISION BLURRED [None]
